FAERS Safety Report 21508949 (Version 1)
Quarter: 2022Q4

REPORT INFORMATION
  Report Type: Spontaneous
  Country: US (occurrence: US)
  Receive Date: 20221026
  Receipt Date: 20221026
  Transmission Date: 20230112
  Serious: No
  Sender: FDA-Public Use
  Company Number: US-GE HEALTHCARE-2022CSU005274

PATIENT
  Age: 76 Year

DRUGS (12)
  1. DATSCAN [Suspect]
     Active Substance: IODINE\IOFLUPANE I-123
     Indication: Diagnostic procedure
     Dosage: 144.3 MBQ, SINGLE
     Route: 065
     Dates: start: 20220729, end: 20220729
  2. DATSCAN [Suspect]
     Active Substance: IODINE\IOFLUPANE I-123
     Indication: Product used for unknown indication
  3. EFFEXOR XR [Concomitant]
     Active Substance: VENLAFAXINE HYDROCHLORIDE
     Dosage: 1 CAPSULE BY MOUTH EVERY DAY
     Route: 048
     Dates: start: 20220522
  4. SINEMET [Concomitant]
     Active Substance: CARBIDOPA\LEVODOPA
     Dosage: TITRATE AS DIRECTED UP TO 1 TABLET BY MOUTH
     Route: 048
     Dates: start: 20220519
  5. NORVASC [Concomitant]
     Active Substance: AMLODIPINE BESYLATE
     Dosage: 1 TABLET BY MOUTH EVERY DAY
     Route: 048
     Dates: start: 20220414
  6. NEURONTIN [Concomitant]
     Active Substance: GABAPENTIN
     Dosage: 1 CAPSULE BY MOUTH AT BEDTIME
     Route: 048
     Dates: start: 20220413
  7. NEURONTIN [Concomitant]
     Active Substance: GABAPENTIN
     Dosage: 200 MG AT DINNER TIME
     Route: 048
  8. CHOLECALCIFEROL [Concomitant]
     Active Substance: CHOLECALCIFEROL
     Dosage: UNK
     Route: 048
     Dates: start: 20220328
  9. CALCIUM CITRATE [Concomitant]
     Active Substance: CALCIUM CITRATE
     Dosage: 800 MG BY MOUTH DAILY
     Route: 048
     Dates: start: 20220327
  10. FLOMAX [Concomitant]
     Active Substance: TAMSULOSIN HYDROCHLORIDE
     Dosage: 1 CAPSULE MOUTH EVERY DAY
     Route: 048
     Dates: start: 20220307
  11. CRESTOR [Concomitant]
     Active Substance: ROSUVASTATIN CALCIUM
     Dosage: 1 TABLET BY MOUTH DAILY
     Route: 048
     Dates: start: 20220227
  12. TOPROL XL [Concomitant]
     Active Substance: METOPROLOL SUCCINATE
     Dosage: 1 TABLET BY MOUTH DAILY
     Route: 048
     Dates: start: 20220227

REACTIONS (2)
  - Drug ineffective [Recovered/Resolved]
  - No adverse event [Recovered/Resolved]

NARRATIVE: CASE EVENT DATE: 20220729
